FAERS Safety Report 14399392 (Version 1)
Quarter: 2018Q1

REPORT INFORMATION
  Report Type: Spontaneous
  Country: US (occurrence: US)
  Receive Date: 20180117
  Receipt Date: 20180117
  Transmission Date: 20180509
  Serious: No
  Sender: FDA-Public Use
  Company Number: US-JNJFOC-20171132758

PATIENT
  Age: 40 Year
  Sex: Female
  Weight: 55 kg

DRUGS (11)
  1. JOLESSA [Concomitant]
     Active Substance: ETHINYL ESTRADIOL\LEVONORGESTREL
     Route: 048
  2. ELAVIL [Concomitant]
     Active Substance: AMITRIPTYLINE HYDROCHLORIDE
     Route: 048
  3. VITAMINE C [Concomitant]
     Active Substance: ASCORBIC ACID
     Route: 048
  4. NASACORT [Concomitant]
     Active Substance: TRIAMCINOLONE ACETONIDE
     Route: 065
  5. ZYRTEC [Concomitant]
     Active Substance: CETIRIZINE HYDROCHLORIDE
     Route: 048
  6. GOLIMUMAB [Suspect]
     Active Substance: GOLIMUMAB
     Indication: ACCIDENTAL EXPOSURE TO PRODUCT
     Route: 065
  7. BIOTIN [Concomitant]
     Active Substance: BIOTIN
     Route: 048
  8. EPIPEN [Concomitant]
     Active Substance: EPINEPHRINE
     Route: 030
  9. FISH OIL [Concomitant]
     Active Substance: FISH OIL
     Route: 048
  10. ATIVAN [Concomitant]
     Active Substance: LORAZEPAM
     Route: 048
  11. VITAMIN E [Concomitant]
     Active Substance: .ALPHA.-TOCOPHEROL
     Route: 048

REACTIONS (3)
  - Burning sensation [Recovered/Resolved]
  - Exposure to toxic agent [Recovered/Resolved]
  - Accidental exposure to product [Unknown]

NARRATIVE: CASE EVENT DATE: 20170705
